FAERS Safety Report 24295197 (Version 2)
Quarter: 2024Q3

REPORT INFORMATION
  Report Type: Spontaneous
  Country: JP (occurrence: JP)
  Receive Date: 20240907
  Receipt Date: 20240921
  Transmission Date: 20241016
  Serious: Yes (Hospitalization)
  Sender: ARDELYX
  Company Number: JP-ARDELYX-2024ARDX006722

PATIENT
  Age: 81 Year
  Sex: Female

DRUGS (2)
  1. TENAPANOR HYDROCHLORIDE [Suspect]
     Active Substance: TENAPANOR HYDROCHLORIDE
     Indication: Hyperphosphataemia
     Dosage: 5 MILLIGRAM
     Route: 048
     Dates: start: 20240627, end: 2024
  2. WARFARIN [Concomitant]
     Active Substance: WARFARIN
     Indication: Product used for unknown indication
     Dosage: UNK
     Route: 065

REACTIONS (3)
  - Diarrhoea [Recovering/Resolving]
  - Haemorrhage [Unknown]
  - Haemoglobin decreased [Recovered/Resolved]
